FAERS Safety Report 6887427-3 (Version None)
Quarter: 2010Q3

REPORT INFORMATION
  Report Type: 
  Country: None (occurrence: None)
  Receive Date: 20100730
  Receipt Date: 20100528
  Transmission Date: 20110219
  Serious: Yes (Hospitalization, Disabling)
  Sender: FDA-Public Use
  Company Number: A0859592A

PATIENT
  Age: 60 Year
  Sex: Female
  Weight: 69.1 kg

DRUGS (10)
  1. SUMATRIPTAN SUCCINATE [Suspect]
     Indication: MIGRAINE
     Dosage: 100MG AS REQUIRED
     Route: 048
     Dates: start: 20100401, end: 20100501
  2. IMITREX [Suspect]
     Indication: MIGRAINE
     Dosage: 1APP AS REQUIRED
     Route: 058
     Dates: start: 19920101
  3. LEVOTHYROXINE SODIUM [Concomitant]
     Dosage: 25MCG PER DAY
     Route: 048
  4. RAMIPRIL [Concomitant]
     Dosage: 5MG PER DAY
     Route: 048
  5. CYMBALTA [Concomitant]
     Dosage: 30MG THREE TIMES PER DAY
     Route: 048
  6. GABAPENTIN [Concomitant]
     Dosage: 300MG PER DAY
     Route: 048
  7. AMBIEN CR [Concomitant]
     Dosage: 12.5MG PER DAY
     Route: 048
  8. DARVOCET-N 100 [Concomitant]
     Dosage: 1TAB THREE TIMES PER DAY
     Route: 048
  9. VESICARE [Concomitant]
     Dosage: 10MG AS REQUIRED
     Route: 048
  10. DIAZEPAM [Concomitant]
     Dosage: 5MG THREE TIMES PER DAY
     Route: 048

REACTIONS (2)
  - DRUG INEFFECTIVE [None]
  - THERAPEUTIC RESPONSE DECREASED [None]
